FAERS Safety Report 17912941 (Version 10)
Quarter: 2021Q3

REPORT INFORMATION
  Report Type: Report from Study
  Country: GB (occurrence: GB)
  Receive Date: 20200618
  Receipt Date: 20210813
  Transmission Date: 20211014
  Serious: Yes (Hospitalization, Other)
  Sender: FDA-Public Use
  Company Number: GB-MYLANLABS-2020M1056175

PATIENT
  Age: 40 Year
  Sex: Female

DRUGS (26)
  1. TAMOXIFEN [Suspect]
     Active Substance: TAMOXIFEN
     Indication: BREAST CANCER METASTATIC
     Dosage: UNK, 1X/DAY
     Route: 048
     Dates: start: 201603
  2. DOCETAXEL. [Suspect]
     Active Substance: DOCETAXEL
     Indication: BREAST CANCER METASTATIC
     Dosage: 140 MILLIGRAM, Q3W
     Route: 042
     Dates: start: 20160324, end: 20160526
  3. DOCETAXEL. [Suspect]
     Active Substance: DOCETAXEL
     Dosage: 110 MILLIGRAM, Q3W (THERAPY DISCONTINUED: PLANNED NUMBER OF CYCLES COMPLETED)
     Route: 042
     Dates: start: 20160526, end: 20160707
  4. PERTUZUMAB. [Suspect]
     Active Substance: PERTUZUMAB
     Dosage: 420 MILLIGRAM, 3XW
     Route: 042
  5. OMEPRAZOLE. [Concomitant]
     Active Substance: OMEPRAZOLE
     Indication: DYSPEPSIA
     Dosage: 20 MILLIGRAM, QD
     Route: 048
     Dates: start: 20170727
  6. TRASTUZUMAB. [Suspect]
     Active Substance: TRASTUZUMAB
     Dosage: 483 MG, Q2W (483 MILLIGRAM, Q3W)
     Route: 042
     Dates: start: 20160413
  7. CITALOPRAM [Concomitant]
     Active Substance: CITALOPRAM HYDROBROMIDE
     Indication: THROMBOSIS PROPHYLAXIS
     Dosage: 20 MILLIGRAM, QD
     Route: 048
     Dates: start: 201003
  8. TRASTUZUMAB. [Suspect]
     Active Substance: TRASTUZUMAB
     Dosage: 651 MILLIGRAM, QD, LOADING DOSE PLANNED NUMBER OF CYCLES COMPLETED
     Route: 041
     Dates: start: 20160323, end: 20160323
  9. PERTUZUMAB. [Suspect]
     Active Substance: PERTUZUMAB
     Dosage: 420 MILLIGRAM, Q3W
     Route: 042
     Dates: start: 20160413
  10. DOCETAXEL. [Suspect]
     Active Substance: DOCETAXEL
     Dosage: 110 MILLIGRAM, Q2W (THERAPY DISCONTINUED: PLANNED NUMBER OF CYCLES COMPLETED)
     Route: 042
     Dates: start: 20160526, end: 20160707
  11. DEXAMETHASONE. [Concomitant]
     Active Substance: DEXAMETHASONE
     Indication: BREAST CANCER METASTATIC
     Dosage: 20 MILLIGRAM, Q3W
     Route: 042
     Dates: start: 20160324
  12. PERTUZUMAB. [Suspect]
     Active Substance: PERTUZUMAB
     Dosage: 840 MILLIGRAM, QD, LOADING DOSE: PLANNED NUMBER OF CYCLES COMPLETED
     Route: 042
     Dates: start: 20160324, end: 20160324
  13. OMEPRAZOLE. [Concomitant]
     Active Substance: OMEPRAZOLE
     Dosage: UNK
  14. DALTEPARIN [Concomitant]
     Active Substance: DALTEPARIN
     Dosage: UNK
  15. TRASTUZUMAB. [Suspect]
     Active Substance: TRASTUZUMAB
     Indication: BREAST CANCER METASTATIC
     Dosage: 651 MILLIGRAM, CYCLE, LOADING DOSE PLANNED NUMBER OF CYCLES COMPLETED
     Route: 041
     Dates: start: 20160323, end: 20160323
  16. TAMOXIFEN [Suspect]
     Active Substance: TAMOXIFEN
     Dosage: UNK
     Route: 048
     Dates: start: 201603
  17. DOCETAXEL. [Suspect]
     Active Substance: DOCETAXEL
     Dosage: 140 MILLIGRAM, Q2W
     Route: 042
     Dates: start: 20160324, end: 20160526
  18. DENOSUMAB [Concomitant]
     Active Substance: DENOSUMAB
     Indication: METASTASES TO BONE
     Dosage: 120 MILLIGRAM, Q28D
     Route: 058
     Dates: start: 20160323
  19. DENOSUMAB [Concomitant]
     Active Substance: DENOSUMAB
     Indication: BREAST CANCER METASTATIC
     Dosage: UNK
  20. DOCETAXEL. [Suspect]
     Active Substance: DOCETAXEL
     Dosage: 140 MG, Q2W
     Route: 042
     Dates: start: 20160324
  21. DEXAMETHASONE. [Concomitant]
     Active Substance: DEXAMETHASONE
     Indication: METASTASES TO BONE
     Dosage: 6 MILLIGRAM, Q3W
     Route: 042
     Dates: start: 20191113
  22. DALTEPARIN [Concomitant]
     Active Substance: DALTEPARIN
     Indication: THROMBOSIS PROPHYLAXIS
     Dosage: 5000 INTERNATIONAL UNIT, QD
     Route: 058
     Dates: start: 20160802, end: 20160809
  23. PARACETAMOL [Concomitant]
     Active Substance: ACETAMINOPHEN
     Indication: PRODUCT USED FOR UNKNOWN INDICATION
     Dosage: UNK
     Route: 065
  24. TRASTUZUMAB. [Suspect]
     Active Substance: TRASTUZUMAB
     Dosage: 483 MILLIGRAM, Q3W
     Route: 042
     Dates: start: 20160413
  25. PERTUZUMAB. [Suspect]
     Active Substance: PERTUZUMAB
     Indication: BREAST CANCER METASTATIC
     Dosage: 840 MILLIGRAM, CYCLE, LOADING DOSE: PLANNED NUMBER OF CYCLES COMPLETED
     Route: 042
     Dates: start: 20160324, end: 20160324
  26. DENOSUMAB [Concomitant]
     Active Substance: DENOSUMAB
     Dosage: 120 MILLIGRAM
     Route: 065

REACTIONS (8)
  - Infection [Recovered/Resolved]
  - Joint stiffness [Recovered/Resolved]
  - Musculoskeletal stiffness [Recovered/Resolved]
  - Atrial thrombosis [Recovered/Resolved]
  - Influenza like illness [Recovered/Resolved]
  - Fatigue [Recovered/Resolved]
  - Diarrhoea [Not Recovered/Not Resolved]
  - Atrophic vulvovaginitis [Recovered/Resolved]

NARRATIVE: CASE EVENT DATE: 20160324
